FAERS Safety Report 8237192-2 (Version None)
Quarter: 2012Q1

REPORT INFORMATION
  Report Type: 
  Country: None (occurrence: None)
  Receive Date: 20120327
  Receipt Date: 20120320
  Transmission Date: 20120608
  Serious: Yes (Other)
  Sender: FDA-Public Use
  Company Number: IT-SANOFI-AVENTIS-2012SA019176

PATIENT
  Age: 70 Year
  Sex: Female

DRUGS (3)
  1. PLAVIX [Suspect]
     Indication: CAROTID ARTERY DISEASE
     Dosage: 525 MG WEEKLY
     Route: 048
     Dates: start: 20120310
  2. ENOXAPARIN SODIUM [Suspect]
     Route: 058
     Dates: start: 20120310
  3. COUMADIN [Suspect]
     Indication: AORTIC VALVE REPLACEMENT
     Route: 048
     Dates: start: 20120101, end: 20120313

REACTIONS (2)
  - INTERNATIONAL NORMALISED RATIO INCREASED [None]
  - OFF LABEL USE [None]
